FAERS Safety Report 9132530 (Version 2)
Quarter: 2013Q2

REPORT INFORMATION
  Report Type: Spontaneous
  Country: DE (occurrence: DE)
  Receive Date: 20130301
  Receipt Date: 20130422
  Transmission Date: 20140414
  Serious: Yes (Other)
  Sender: FDA-Public Use
  Company Number: DE-GLAXOSMITHKLINE-D0078939A

PATIENT
  Sex: Female
  Weight: 19 kg

DRUGS (12)
  1. LAMICTAL [Suspect]
     Indication: CONVULSION
     Dosage: 125MG TWICE PER DAY
     Route: 048
     Dates: start: 201210
  2. IBUPROFEN [Suspect]
     Route: 048
  3. PARACETAMOL [Suspect]
     Route: 065
  4. KEPPRA [Concomitant]
     Dosage: 750MG TWICE PER DAY
     Route: 065
  5. SINGULAIR [Concomitant]
     Dosage: 5MG PER DAY
     Route: 065
  6. KLACID [Concomitant]
     Dosage: 5ML TWICE PER DAY
     Route: 065
  7. L THYROXIN [Concomitant]
     Dosage: 125MCG PER DAY
     Route: 065
  8. PENICILLIN [Concomitant]
     Dosage: 5ML TWICE PER DAY
     Route: 065
  9. VITAMIN B6 [Concomitant]
     Dosage: 40MG TWICE PER DAY
     Route: 065
  10. VITAMIN D [Concomitant]
     Dosage: 1000MCG PER DAY
     Route: 065
  11. SEREVENT [Concomitant]
     Route: 065
  12. BUDESONIDE [Concomitant]
     Dosage: 1PUFF TWICE PER DAY
     Route: 055

REACTIONS (4)
  - Convulsion [Recovered/Resolved]
  - Nausea [Recovered/Resolved]
  - Vomiting [Recovered/Resolved]
  - Drug interaction [Unknown]
